FAERS Safety Report 6108145-5 (Version None)
Quarter: 2009Q1

REPORT INFORMATION
  Report Type: 
  Country: None (occurrence: None)
  Receive Date: 20090309
  Receipt Date: 20090223
  Transmission Date: 20090719
  Serious: Yes (Hospitalization)
  Sender: FDA-Public Use
  Company Number: FR-ROCHE-616293

PATIENT
  Sex: Male

DRUGS (6)
  1. CAPECITABINE [Suspect]
     Route: 065
  2. IRINOTECAN HCL [Suspect]
     Dosage: DRUG WAS PERM,ANENTLY DISCONTINUED. FORM; CONCENTRATE FOR SOLUTION FOR INFUSION.
     Route: 065
  3. EPIRUBICIN HCL [Suspect]
     Route: 065
  4. FOLINIC ACID [Suspect]
     Dosage: DRUG WAS PERMANENTLY DISCONTINUED.
     Route: 065
  5. FLUOROURACIL [Suspect]
     Dosage: DRUG WAS PERMANENTLY DISCONTINUED.
     Route: 065
  6. CISPLATIN [Suspect]
     Route: 065

REACTIONS (1)
  - GASTROINTESTINAL TOXICITY [None]
